FAERS Safety Report 4683358-8 (Version None)
Quarter: 2005Q2

REPORT INFORMATION
  Report Type: 
  Country: None (occurrence: None)
  Receive Date: 20050606
  Receipt Date: 20050606
  Transmission Date: 20051028
  Serious: Yes (Other)
  Sender: FDA-Public Use
  Company Number: None

PATIENT
  Age: 69 Year
  Sex: Male
  Weight: 81.6475 kg

DRUGS (2)
  1. BUSPIRONE HCL [Suspect]
     Indication: ANXIETY DISORDER
     Dosage: 1/3/DAY ORAL
     Route: 048
     Dates: start: 20050527, end: 20050602
  2. BUSPIRONE HCL [Suspect]
     Indication: PANIC DISORDER
     Dosage: 1/3/DAY ORAL
     Route: 048
     Dates: start: 20050527, end: 20050602

REACTIONS (6)
  - ANXIETY [None]
  - BLOOD PRESSURE INCREASED [None]
  - CONDITION AGGRAVATED [None]
  - CRYING [None]
  - MALAISE [None]
  - TREMOR [None]
